FAERS Safety Report 9819453 (Version 1)
Quarter: 2014Q1

REPORT INFORMATION
  Report Type: Spontaneous
  Country: US (occurrence: US)
  Receive Date: 20140115
  Receipt Date: 20140115
  Transmission Date: 20141002
  Serious: Yes (Other)
  Sender: FDA-Public Use
  Company Number: US-PFIZER INC-2014012532

PATIENT
  Age: 77 Year
  Sex: Female
  Weight: 102.4 kg

DRUGS (6)
  1. CELEBREX [Suspect]
     Indication: ARTHRITIS
     Dosage: 200 MG, DAILY
     Route: 048
  2. CELEBREX [Suspect]
     Indication: OSTEOARTHRITIS
     Dosage: UNKNOWN DOSE
     Route: 048
  3. CELEBREX [Suspect]
     Indication: INTERVERTEBRAL DISC DEGENERATION
  4. LEVOTHYROXINE [Concomitant]
     Indication: HYPOTHYROIDISM
     Dosage: 100 UG, DAILY
  5. PANTOPRAZOLE [Concomitant]
     Indication: GASTROOESOPHAGEAL REFLUX DISEASE
     Dosage: 40 MG, 2X/DAY
  6. OXYCONTIN [Concomitant]
     Indication: PAIN
     Dosage: 60 MG, DAILY

REACTIONS (5)
  - Oesophageal dilatation [Unknown]
  - Arterial occlusive disease [Unknown]
  - Arthralgia [Unknown]
  - Gastric disorder [Not Recovered/Not Resolved]
  - Abdominal distension [Unknown]
